FAERS Safety Report 6619359 (Version 6)
Quarter: 2012Q4

REPORT INFORMATION
  Report Type: 
  Country: ES (occurrence: ES)
  Receive Date: 20080421
  Receipt Date: 20121219
  Transmission Date: 20130627
  Serious: Yes (Hospitalization)
  Sender: FDA-Public Use
  Company Number: ES-JNJFOC-20080405011

PATIENT
  Age: 6 Year
  Sex: Female

DRUGS (1)
  1. RISPERDAL [Suspect]
     Indication: ABNORMAL BEHAVIOUR
     Route: 065
     Dates: start: 20071207, end: 20080202

REACTIONS (1)
  - Benign intracranial hypertension [Recovered/Resolved]
